FAERS Safety Report 10400520 (Version 1)
Quarter: 2014Q3

REPORT INFORMATION
  Report Type: Spontaneous
  Country: US (occurrence: US)
  Receive Date: 20140821
  Receipt Date: 20140821
  Transmission Date: 20150326
  Serious: No
  Sender: FDA-Public Use
  Company Number: US-ASTRAZENECA-2013SE68343

PATIENT
  Age: 68 Year
  Sex: Male
  Weight: 136.1 kg

DRUGS (4)
  1. ANTI CRAMPING MEDICATION [Concomitant]
     Indication: MUSCLE SPASMS
  2. SYMBICORT [Suspect]
     Active Substance: BUDESONIDE\FORMOTEROL FUMARATE DIHYDRATE
     Indication: INCREASED UPPER AIRWAY SECRETION
     Dosage: 160 MCG/4.5 MCG, 2 PUFFS DAILY
     Route: 055
     Dates: start: 201308
  3. CHOLESTEROL MEDICINE [Concomitant]
     Active Substance: UNSPECIFIED INGREDIENT
  4. NASAL INHALER [Concomitant]
     Indication: NASAL DISORDER
     Dosage: HS

REACTIONS (2)
  - Dysphonia [Unknown]
  - Intentional product misuse [Unknown]
